FAERS Safety Report 8161179-1 (Version None)
Quarter: 2012Q1

REPORT INFORMATION
  Report Type: 
  Country: None (occurrence: None)
  Receive Date: 20120103
  Receipt Date: 20111116
  Transmission Date: 20120608
  Serious: No
  Sender: FDA-Public Use
  Company Number: AE-2011-003592

PATIENT
  Age: 50 Year
  Sex: Female
  Weight: 94.3482 kg

DRUGS (3)
  1. INCIVEK [Suspect]
     Dosage: 2250 MG (750 MG, 1 IN 8 HR), ORAL
     Route: 048
     Dates: start: 20111014
  2. RIBAPAK (RIBAVIRIN) [Concomitant]
  3. PEGASYS [Concomitant]

REACTIONS (5)
  - ANORECTAL DISCOMFORT [None]
  - RASH [None]
  - HAEMORRHOIDS [None]
  - FREQUENT BOWEL MOVEMENTS [None]
  - DECREASED APPETITE [None]
